FAERS Safety Report 6570998-4 (Version None)
Quarter: 2010Q1

REPORT INFORMATION
  Report Type: 
  Country: None (occurrence: None)
  Receive Date: 20100203
  Receipt Date: 20100203
  Transmission Date: 20100710
  Serious: Yes (Other)
  Sender: FDA-Public Use
  Company Number: None

PATIENT
  Sex: Female
  Weight: 45.3597 kg

DRUGS (2)
  1. DANTROLENE SODIUM [Suspect]
     Indication: CEREBRAL PALSY
     Dosage: 25 MG EVERY 8 HOURS PO
     Route: 048
     Dates: start: 20090824, end: 20091215
  2. DANTROLENE SODIUM [Suspect]
     Indication: MUSCLE SPASTICITY
     Dosage: 25 MG EVERY 8 HOURS PO
     Route: 048
     Dates: start: 20090824, end: 20091215

REACTIONS (3)
  - FURUNCLE [None]
  - STAPHYLOCOCCAL SKIN INFECTION [None]
  - SUBCUTANEOUS ABSCESS [None]
